FAERS Safety Report 15310791 (Version 17)
Quarter: 2019Q4

REPORT INFORMATION
  Report Type: Spontaneous
  Country: CA (occurrence: CA)
  Receive Date: 20180823
  Receipt Date: 20191230
  Transmission Date: 20200122
  Serious: Yes (Life-Threatening, Hospitalization, Other)
  Sender: FDA-Public Use
  Company Number: CA-ROCHE-2172866

PATIENT
  Age: 35 Year
  Sex: Female

DRUGS (40)
  1. XOLAIR [Suspect]
     Active Substance: OMALIZUMAB
     Route: 058
     Dates: start: 20191017
  2. VENTOLIN [Concomitant]
     Active Substance: ALBUTEROL SULFATE
  3. BENADRYL [Concomitant]
     Active Substance: DIPHENHYDRAMINE HYDROCHLORIDE
  4. XOLAIR [Suspect]
     Active Substance: OMALIZUMAB
     Route: 058
     Dates: start: 20161108
  5. XOLAIR [Suspect]
     Active Substance: OMALIZUMAB
     Route: 058
     Dates: start: 20181228
  6. SINGULAIR [Concomitant]
     Active Substance: MONTELUKAST SODIUM
  7. XOLAIR [Suspect]
     Active Substance: OMALIZUMAB
     Route: 058
     Dates: start: 20171027
  8. XOLAIR [Suspect]
     Active Substance: OMALIZUMAB
     Route: 058
     Dates: start: 201805
  9. XOLAIR [Suspect]
     Active Substance: OMALIZUMAB
     Route: 058
     Dates: start: 20181116
  10. XOLAIR [Suspect]
     Active Substance: OMALIZUMAB
     Route: 058
     Dates: start: 20190226
  11. XOLAIR [Suspect]
     Active Substance: OMALIZUMAB
     Route: 058
     Dates: start: 20190503
  12. XOLAIR [Suspect]
     Active Substance: OMALIZUMAB
     Route: 058
     Dates: start: 20190926
  13. ATROVENT [Concomitant]
     Active Substance: IPRATROPIUM BROMIDE
  14. XOLAIR [Suspect]
     Active Substance: OMALIZUMAB
     Indication: ASTHMA
     Route: 058
     Dates: start: 20160519
  15. XOLAIR [Suspect]
     Active Substance: OMALIZUMAB
     Route: 058
     Dates: start: 20170818
  16. XOLAIR [Suspect]
     Active Substance: OMALIZUMAB
     Route: 058
     Dates: start: 20190418
  17. XOLAIR [Suspect]
     Active Substance: OMALIZUMAB
     Route: 058
     Dates: start: 20190515
  18. DULOXETINE. [Concomitant]
     Active Substance: DULOXETINE
     Route: 065
  19. ADVAIR HFA [Concomitant]
     Active Substance: FLUTICASONE PROPIONATE\SALMETEROL XINAFOATE
     Route: 065
  20. BIAXIN [Concomitant]
     Active Substance: CLARITHROMYCIN
     Dosage: 500 OT
     Route: 065
  21. ALVESCO [Concomitant]
     Active Substance: CICLESONIDE
     Route: 065
  22. XOLAIR [Suspect]
     Active Substance: OMALIZUMAB
     Route: 058
     Dates: start: 20171027
  23. XOLAIR [Suspect]
     Active Substance: OMALIZUMAB
     Route: 058
     Dates: start: 20180302
  24. XOLAIR [Suspect]
     Active Substance: OMALIZUMAB
     Route: 058
     Dates: start: 20180802
  25. XOLAIR [Suspect]
     Active Substance: OMALIZUMAB
     Route: 058
     Dates: start: 20170818
  26. XOLAIR [Suspect]
     Active Substance: OMALIZUMAB
     Route: 058
     Dates: start: 20180420
  27. XOLAIR [Suspect]
     Active Substance: OMALIZUMAB
     Route: 058
     Dates: start: 20190311
  28. XOLAIR [Suspect]
     Active Substance: OMALIZUMAB
     Route: 058
     Dates: start: 20190705
  29. PULMICORT TURBUHALER [Concomitant]
     Active Substance: BUDESONIDE
  30. XOLAIR [Suspect]
     Active Substance: OMALIZUMAB
     Route: 058
     Dates: start: 20161130
  31. XOLAIR [Suspect]
     Active Substance: OMALIZUMAB
     Route: 058
     Dates: start: 20190611
  32. ATARAX [Concomitant]
     Active Substance: HYDROXYZINE HYDROCHLORIDE
  33. PREDNISONE. [Concomitant]
     Active Substance: PREDNISONE
  34. ZENHALE [Concomitant]
     Active Substance: FORMOTEROL FUMARATE\MOMETASONE FUROATE
     Route: 065
  35. XOLAIR [Suspect]
     Active Substance: OMALIZUMAB
     Route: 058
     Dates: start: 20180302
  36. EPIPEN [Concomitant]
     Active Substance: EPINEPHRINE
  37. FASENRA [Concomitant]
     Active Substance: BENRALIZUMAB
  38. XOLAIR [Suspect]
     Active Substance: OMALIZUMAB
     Route: 058
     Dates: start: 20170104
  39. XOLAIR [Suspect]
     Active Substance: OMALIZUMAB
     Route: 058
     Dates: start: 20180330
  40. XOLAIR [Suspect]
     Active Substance: OMALIZUMAB
     Route: 058
     Dates: start: 2019

REACTIONS (47)
  - Asthenia [Unknown]
  - Decreased appetite [Unknown]
  - Vomiting [Unknown]
  - Vaginal cyst [Unknown]
  - Fatigue [Unknown]
  - Fibromyalgia [Unknown]
  - Hiatus hernia [Unknown]
  - Panic attack [Unknown]
  - Pulmonary embolism [Unknown]
  - Asthma [Not Recovered/Not Resolved]
  - Cough [Not Recovered/Not Resolved]
  - Insomnia [Unknown]
  - International normalised ratio abnormal [Unknown]
  - Road traffic accident [Unknown]
  - Nausea [Unknown]
  - Loss of consciousness [Unknown]
  - Crying [Unknown]
  - Stress [Unknown]
  - Back pain [Unknown]
  - Malaise [Unknown]
  - Anxiety [Unknown]
  - Headache [Unknown]
  - Infection [Unknown]
  - Pain [Unknown]
  - Weight decreased [Unknown]
  - Vision blurred [Unknown]
  - Carpal tunnel syndrome [Unknown]
  - Productive cough [Not Recovered/Not Resolved]
  - Abdominal pain upper [Unknown]
  - Depression [Unknown]
  - Dyspnoea [Unknown]
  - Sputum discoloured [Unknown]
  - Pneumonia [Unknown]
  - Pruritus [Unknown]
  - Hot flush [Unknown]
  - Hypoaesthesia [Unknown]
  - Wheezing [Not Recovered/Not Resolved]
  - Sepsis [Unknown]
  - Diplopia [Unknown]
  - Furuncle [Unknown]
  - Arthropod sting [Unknown]
  - Respiratory disorder [Not Recovered/Not Resolved]
  - Suicidal ideation [Unknown]
  - Streptococcal infection [Unknown]
  - Haematochezia [Unknown]
  - Hypersensitivity [Unknown]
  - Neck pain [Unknown]

NARRATIVE: CASE EVENT DATE: 20160519
